FAERS Safety Report 5192819-7 (Version None)
Quarter: 2006Q4

REPORT INFORMATION
  Report Type: 
  Country: None (occurrence: None)
  Receive Date: 20061228
  Receipt Date: 20051114
  Transmission Date: 20070319
  Serious: No
  Sender: FDA-Public Use
  Company Number: US-GLAXOSMITHKLINE-A0582146A

PATIENT
  Age: 83 Year
  Sex: Female

DRUGS (4)
  1. FLONASE [Suspect]
     Dosage: 2SPR PER DAY
     Route: 045
     Dates: start: 20050501
  2. ALLEGRA [Concomitant]
  3. BLOOD PRESSURE MEDICATION [Concomitant]
  4. PROTONIX [Concomitant]

REACTIONS (1)
  - EPISTAXIS [None]
